FAERS Safety Report 7475128-2 (Version None)
Quarter: 2011Q2

REPORT INFORMATION
  Report Type: 
  Country: None (occurrence: None)
  Receive Date: 20110512
  Receipt Date: 20110427
  Transmission Date: 20111010
  Serious: Yes (Hospitalization, Other)
  Sender: FDA-Public Use
  Company Number: US-ELI_LILLY_AND_COMPANY-US201103000659

PATIENT
  Sex: Female

DRUGS (1)
  1. FORTEO [Suspect]
     Indication: OSTEOPOROSIS

REACTIONS (6)
  - INJECTION SITE PAIN [None]
  - VERTIGO [None]
  - HOSPITALISATION [None]
  - ASTHENIA [None]
  - DIZZINESS [None]
  - KNEE OPERATION [None]
